FAERS Safety Report 23338466 (Version 2)
Quarter: 2024Q1

REPORT INFORMATION
  Report Type: Spontaneous
  Country: JP (occurrence: JP)
  Receive Date: 20231226
  Receipt Date: 20240214
  Transmission Date: 20240409
  Serious: Yes (Other)
  Sender: FDA-Public Use
  Company Number: JP-BEH-2023165286

PATIENT
  Sex: Female
  Weight: 70 kg

DRUGS (3)
  1. HIZENTRA [Suspect]
     Active Substance: HUMAN IMMUNOGLOBULIN G
     Indication: Chronic inflammatory demyelinating polyradiculoneuropathy
     Dosage: 12 GRAM
     Route: 058
     Dates: start: 202208, end: 2022
  2. HIZENTRA [Suspect]
     Active Substance: HUMAN IMMUNOGLOBULIN G
     Dosage: 20 GRAM
     Route: 058
     Dates: start: 20220920, end: 2022
  3. HIZENTRA [Suspect]
     Active Substance: HUMAN IMMUNOGLOBULIN G
     Dosage: 28 GRAM
     Route: 058
     Dates: start: 202210

REACTIONS (4)
  - Chronic inflammatory demyelinating polyradiculoneuropathy [Recovered/Resolved]
  - Grip strength decreased [Recovered/Resolved]
  - Chronic inflammatory demyelinating polyradiculoneuropathy [Recovered/Resolved]
  - Grip strength decreased [Recovered/Resolved]

NARRATIVE: CASE EVENT DATE: 20220930
